FAERS Safety Report 18282738 (Version 3)
Quarter: 2020Q4

REPORT INFORMATION
  Report Type: Spontaneous
  Country: US (occurrence: US)
  Receive Date: 20200918
  Receipt Date: 20201109
  Transmission Date: 20210113
  Serious: No
  Sender: FDA-Public Use
  Company Number: US-PFIZER INC-2020355429

PATIENT
  Age: 76 Year
  Sex: Female
  Weight: 58.06 kg

DRUGS (2)
  1. IBRANCE [Suspect]
     Active Substance: PALBOCICLIB
     Indication: BREAST CANCER METASTATIC
     Dosage: 75 MG, CYCLIC (EACH DAY FOR 21 DAYS, 7 DAYS OFF)
     Route: 048
     Dates: start: 201907
  2. IBRANCE [Suspect]
     Active Substance: PALBOCICLIB
     Dosage: UNK (100 MG)

REACTIONS (8)
  - Genital rash [Recovering/Resolving]
  - Rash pruritic [Recovering/Resolving]
  - Pruritus [Not Recovered/Not Resolved]
  - Alopecia [Not Recovered/Not Resolved]
  - Vulvovaginal pruritus [Not Recovered/Not Resolved]
  - Perineal pain [Not Recovered/Not Resolved]
  - Pruritus genital [Not Recovered/Not Resolved]
  - White blood cell count decreased [Unknown]

NARRATIVE: CASE EVENT DATE: 2020
